FAERS Safety Report 12433514 (Version 1)
Quarter: 2016Q2

REPORT INFORMATION
  Report Type: Spontaneous
  Country: US (occurrence: US)
  Receive Date: 20160603
  Receipt Date: 20160603
  Transmission Date: 20160815
  Serious: No
  Sender: FDA-Public Use
  Company Number: US-TEVA-662632USA

PATIENT
  Sex: Female

DRUGS (1)
  1. COPAXONE [Suspect]
     Active Substance: GLATIRAMER ACETATE
     Indication: MULTIPLE SCLEROSIS
     Route: 065

REACTIONS (8)
  - Dizziness [Unknown]
  - Fall [Unknown]
  - Fatigue [Unknown]
  - Syncope [Unknown]
  - Asthenia [Unknown]
  - Injection site haemorrhage [Unknown]
  - Malaise [Unknown]
  - Presyncope [Unknown]
